FAERS Safety Report 8811621 (Version 1)
Quarter: 2012Q4

REPORT INFORMATION
  Report Type: Spontaneous
  Country: US (occurrence: None)
  Receive Date: 20120925
  Receipt Date: 20120925
  Transmission Date: 20130627
  Serious: Yes (Death, Hospitalization)
  Sender: FDA-Public Use
  Company Number: None

PATIENT
  Sex: Male
  Weight: 78 kg

DRUGS (5)
  1. CYTARABINE [Suspect]
     Route: 037
     Dates: start: 20120712
  2. DAUNORUBICIN [Suspect]
     Dates: end: 20120802
  3. METHOTREXATE [Suspect]
     Route: 037
     Dates: start: 20120809
  4. PEG-L ASPARAGINASE [Suspect]
     Route: 042
     Dates: start: 20120715
  5. PREDNISONE [Suspect]
     Route: 048
     Dates: start: 20120808

REACTIONS (12)
  - Cough [None]
  - Blood pressure diastolic decreased [None]
  - Asthenia [None]
  - Paraesthesia [None]
  - Pain in extremity [None]
  - Computerised tomogram head [None]
  - Hypotension [None]
  - Splenic infarction [None]
  - Zygomycosis [None]
  - Embolism [None]
  - Cardiac failure [None]
  - Respiratory failure [None]
